FAERS Safety Report 9693736 (Version 5)
Quarter: 2014Q1

REPORT INFORMATION
  Report Type: Spontaneous
  Country: GR (occurrence: GR)
  Receive Date: 20131118
  Receipt Date: 20140304
  Transmission Date: 20141002
  Serious: Yes (Other)
  Sender: FDA-Public Use
  Company Number: GR-ROCHE-1302121

PATIENT
  Age: 21 Year
  Sex: Male

DRUGS (1)
  1. XOLAIR [Suspect]
     Indication: CHRONIC SPONTANEOUS URTICARIA
     Dosage: 2X150 MG
     Route: 065

REACTIONS (7)
  - Chest pain [Unknown]
  - Lymphadenopathy [Unknown]
  - Off label use [Unknown]
  - Breast enlargement [Unknown]
  - Oestradiol increased [Unknown]
  - C-reactive protein increased [Unknown]
  - Blood testosterone decreased [Unknown]
